FAERS Safety Report 9804858 (Version 3)
Quarter: 2014Q2

REPORT INFORMATION
  Report Type: Report from Study
  Country: DK (occurrence: DK)
  Receive Date: 20140108
  Receipt Date: 20140407
  Transmission Date: 20141212
  Serious: Yes (Life-Threatening)
  Sender: FDA-Public Use
  Company Number: DK-AMGEN-DNKCT2013091838

PATIENT
  Age: 58 Year
  Sex: Female
  Weight: 55 kg

DRUGS (4)
  1. ETANERCEPT [Suspect]
     Indication: RHEUMATOID ARTHRITIS
     Dosage: UNK
     Route: 065
     Dates: start: 200809
  2. METHOTREXAT                        /00113802/ [Concomitant]
     Indication: RHEUMATOID ARTHRITIS
     Dosage: STRENGTH: 2.5 MG. THE DRUG WAS STILL BEING GIVEN
     Route: 048
     Dates: start: 19980426
  3. PREDNISOLON                        /00016201/ [Concomitant]
     Dosage: STILL BEING GIVEN
     Route: 065
     Dates: start: 20030426
  4. ERCOQUIN [Concomitant]
     Dosage: STILL BEING GIVEN
     Dates: start: 20120821

REACTIONS (1)
  - Central nervous system lymphoma [Not Recovered/Not Resolved]
